FAERS Safety Report 5629220-5 (Version None)
Quarter: 2008Q1

REPORT INFORMATION
  Report Type: 
  Country: None (occurrence: None)
  Receive Date: 20080217
  Receipt Date: 20070828
  Transmission Date: 20080703
  Serious: No
  Sender: FDA-Public Use
  Company Number: US-BAYER-US-2007-032378

PATIENT
  Age: 70 Year
  Sex: Male
  Weight: 70 kg

DRUGS (1)
  1. FINACEA [Suspect]
     Indication: SKIN IRRITATION
     Dosage: UNIT DOSE: 15 %
     Route: 061
     Dates: start: 20070727, end: 20070824

REACTIONS (3)
  - PRURITUS [None]
  - SKIN EXFOLIATION [None]
  - SKIN IRRITATION [None]
